FAERS Safety Report 24113743 (Version 2)
Quarter: 2024Q3

REPORT INFORMATION
  Report Type: Spontaneous
  Country: CA (occurrence: CA)
  Receive Date: 20240720
  Receipt Date: 20240816
  Transmission Date: 20241016
  Serious: Yes (Hospitalization, Other)
  Sender: HIKMA
  Company Number: CA-HIKMA PHARMACEUTICALS USA INC.-CA-H14001-24-06309

PATIENT
  Age: 60 Year
  Sex: Male

DRUGS (5)
  1. CEFAZOLIN [Suspect]
     Active Substance: CEFAZOLIN
     Indication: Sepsis
     Dosage: 1 GRAM; ONCE
     Route: 065
  2. CEFAZOLIN [Suspect]
     Active Substance: CEFAZOLIN
     Dosage: 2 GRAM, BID
     Route: 065
  3. CEFAZOLIN [Suspect]
     Active Substance: CEFAZOLIN
     Dosage: 2 GRAM
     Route: 065
  4. AMPICILLIN [Concomitant]
     Active Substance: AMPICILLIN
     Indication: Product used for unknown indication
     Dosage: UNK
     Route: 065
  5. VANCOMYCIN [Concomitant]
     Active Substance: VANCOMYCIN
     Indication: Sepsis
     Dosage: 1 GRAM
     Route: 065

REACTIONS (6)
  - Immune thrombocytopenia [Recovered/Resolved]
  - Condition aggravated [Recovered/Resolved]
  - Gastrointestinal haemorrhage [Recovered/Resolved]
  - Disease recurrence [Recovered/Resolved]
  - Haemolysis [Recovered/Resolved]
  - Accidental exposure to product [Recovered/Resolved]
